FAERS Safety Report 8930392 (Version 1)
Quarter: 2012Q4

REPORT INFORMATION
  Report Type: Report from Study
  Country: ES (occurrence: ES)
  Receive Date: 20121128
  Receipt Date: 20121128
  Transmission Date: 20130627
  Serious: Yes (Hospitalization)
  Sender: FDA-Public Use
  Company Number: ES-GLAXOSMITHKLINE-B0847228A

PATIENT
  Age: 73 Year
  Sex: Female
  Weight: 79 kg

DRUGS (7)
  1. LAPATINIB [Suspect]
     Indication: BREAST CANCER
     Route: 048
     Dates: start: 20110303, end: 20110415
  2. CAPECITABINE [Suspect]
     Indication: BREAST CANCER
     Route: 048
     Dates: start: 20110303, end: 20110415
  3. TRASTUZUMAB [Suspect]
     Indication: BREAST CANCER
     Dosage: 284.4MG per day
     Route: 042
     Dates: start: 20121016
  4. CANDESARTAN [Concomitant]
     Indication: HYPERTENSION
     Dosage: 12.5MG per day
  5. OMEPRAZOLE [Concomitant]
     Indication: PROPHYLAXIS AGAINST GASTROINTESTINAL ULCER
     Dosage: 20MG per day
  6. IBUPROFEN [Concomitant]
     Indication: PAIN PROPHYLAXIS
  7. NOCTAMID [Concomitant]
     Indication: INSOMNIA

REACTIONS (3)
  - Urinary tract infection [Not Recovered/Not Resolved]
  - Pneumonia [Recovered/Resolved]
  - Thrombocytopenia [Recovered/Resolved]
